FAERS Safety Report 22148678 (Version 7)
Quarter: 2024Q2

REPORT INFORMATION
  Report Type: Report from Study
  Country: US (occurrence: US)
  Receive Date: 20230328
  Receipt Date: 20240620
  Transmission Date: 20240716
  Serious: Yes (Disabling, Other)
  Sender: FDA-Public Use
  Company Number: US-HORIZON THERAPEUTICS-HZN-2022-004258

PATIENT
  Age: 71 Year
  Sex: Female

DRUGS (29)
  1. TEPEZZA [Suspect]
     Active Substance: TEPROTUMUMAB-TRBW
     Indication: Endocrine ophthalmopathy
     Dosage: 677 MILLIGRAM (FIRST INFUSION)
     Route: 042
     Dates: start: 20220427
  2. TEPEZZA [Suspect]
     Active Substance: TEPROTUMUMAB-TRBW
     Indication: Graves^ disease
     Dosage: 1340 MILLIGRAM, Q3WK (SECOND INFUSION)
     Route: 042
     Dates: start: 20220518
  3. TEPEZZA [Suspect]
     Active Substance: TEPROTUMUMAB-TRBW
     Dosage: 1330 MILLIGRAM, Q3WK (THIRD INFUSION)
     Route: 042
     Dates: start: 20220608
  4. TEPEZZA [Suspect]
     Active Substance: TEPROTUMUMAB-TRBW
     Dosage: 1338 MILLIGRAM, Q3WK (FOURTH INFUSION)
     Route: 042
     Dates: start: 20220629
  5. TEPEZZA [Suspect]
     Active Substance: TEPROTUMUMAB-TRBW
     Dosage: 1334 MILLIGRAM, Q3WK (FIFTH INFUSION)
     Route: 042
     Dates: start: 20220727
  6. TEPEZZA [Suspect]
     Active Substance: TEPROTUMUMAB-TRBW
     Dosage: 1260 MILLIGRAM, Q3WK (SIXTH INFUSION)
     Route: 042
     Dates: start: 20220817
  7. TEPEZZA [Suspect]
     Active Substance: TEPROTUMUMAB-TRBW
     Dosage: 1340 MILLIGRAM, Q3WK (SEVENTH INFUSION)
     Route: 042
     Dates: start: 20220907
  8. TEPEZZA [Suspect]
     Active Substance: TEPROTUMUMAB-TRBW
     Dosage: 20 MILLIGRAM/KILOGRAM, Q3WK (LAST INFUSION)
     Route: 042
     Dates: start: 20220928, end: 20220928
  9. COZAAR [Concomitant]
     Active Substance: LOSARTAN POTASSIUM
     Dosage: 25 MG
     Route: 048
     Dates: start: 20220211
  10. COZAAR [Concomitant]
     Active Substance: LOSARTAN POTASSIUM
     Dosage: 2 DOSAGE FORM, QD (50 MG TABLET)
     Route: 048
  11. SYNTHROID [Concomitant]
     Active Substance: LEVOTHYROXINE SODIUM
     Dosage: 25 UG, QD
     Route: 048
     Dates: start: 20210914
  12. TOPROL XL [Concomitant]
     Active Substance: METOPROLOL SUCCINATE
     Dosage: 50 MG, QD
     Route: 048
     Dates: start: 20211216
  13. TOPROL XL [Concomitant]
     Active Substance: METOPROLOL SUCCINATE
     Dosage: 25 MG, QD
     Route: 048
     Dates: start: 20220411
  14. ECOTRIN [Concomitant]
     Active Substance: ASPIRIN
     Dosage: 81 MG, QD
     Route: 048
     Dates: start: 20220411
  15. LIPITOR [Concomitant]
     Active Substance: ATORVASTATIN CALCIUM
     Dosage: 40 MG, ONE TABLET EVERY MORNING
     Route: 048
     Dates: start: 20220411
  16. FIORICET [Concomitant]
     Active Substance: ACETAMINOPHEN\BUTALBITAL\CAFFEINE
     Indication: Migraine
     Dosage: 50 MG-325 MG (TAKE 1 TO 2 TABLETS BY MOUTH EVERY 4 TO 6 HOURS)
     Route: 048
     Dates: start: 20220211
  17. FIORICET [Concomitant]
     Active Substance: ACETAMINOPHEN\BUTALBITAL\CAFFEINE
     Dosage: 1 DOSAGE FORM (1 TABLET BY MOUTH EVERY 4 HOURS)
     Route: 048
  18. RESTASIS [Concomitant]
     Active Substance: CYCLOSPORINE
     Dosage: 0.05 %, BID
     Route: 047
     Dates: start: 20211026
  19. ASPIRIN [Concomitant]
     Active Substance: ASPIRIN
  20. ESGIC [Concomitant]
     Active Substance: ACETAMINOPHEN\BUTALBITAL\CAFFEINE
     Dosage: 1 DOSAGE FORM (1 TABLET BY MOUTH EVERY 4 HOURS)
     Route: 048
  21. OMEPRAZOLE [Concomitant]
     Active Substance: DONEPEZIL HYDROCHLORIDE\OMEPRAZOLE\OMEPRAZOLE MAGNESIUM
     Dosage: TAKE 1 CAPSULE, BID
     Route: 048
     Dates: start: 20211102, end: 20221101
  22. ONDANSETRON [Concomitant]
     Active Substance: ONDANSETRON
     Indication: Nausea
     Dosage: TAKE 1 TABLET EVERY 8 HOURS
     Route: 048
     Dates: start: 20211213
  23. PRED FORTE [Concomitant]
     Active Substance: PREDNISOLONE ACETATE
     Dosage: 1 DROP, QID
     Route: 047
     Dates: start: 20210210
  24. MINERALS\VITAMINS [Concomitant]
     Active Substance: MINERALS\VITAMINS
  25. RETAINE MGD [Concomitant]
     Active Substance: LIGHT MINERAL OIL\MINERAL OIL
     Dosage: (0.5%-0.5%) 1 DROP, QID
     Route: 047
     Dates: start: 20210831, end: 20220830
  26. REFRESH P.M. [Concomitant]
     Active Substance: MINERAL OIL\PETROLATUM
     Dosage: (57.3%- 42.5%) INSTILL 1/4 STRIP ONTO LOWER EYELID IN BOTH EYES AT BEDTIME
     Dates: start: 20210901, end: 20220831
  27. SUCRALFATE [Concomitant]
     Active Substance: SUCRALFATE
     Dosage: QID, EMPTY STOMACH 1 HOUR BEFORE MEALS AND AT BEDTIME
     Route: 048
     Dates: start: 20211215
  28. MEDROL [Concomitant]
     Active Substance: METHYLPREDNISOLONE
     Dosage: UNK UNK, QD
     Route: 048
     Dates: start: 20220222, end: 20230221
  29. MINERAL OIL LIGHT [Concomitant]
     Dosage: 0.5- 0.5 %

REACTIONS (31)
  - Disability [Unknown]
  - Deafness permanent [Not Recovered/Not Resolved]
  - Blindness [Unknown]
  - Discomfort [Unknown]
  - Impaired quality of life [Unknown]
  - Anxiety [Unknown]
  - Concomitant disease aggravated [Unknown]
  - Economic problem [Unknown]
  - Pain [Unknown]
  - Emotional distress [Unknown]
  - Arthralgia [Unknown]
  - Oropharyngeal pain [Unknown]
  - Muscle strain [Unknown]
  - Neck pain [Unknown]
  - Excessive cerumen production [Unknown]
  - Swelling of eyelid [Unknown]
  - Decreased appetite [Unknown]
  - Product quality issue [Unknown]
  - Blood alkaline phosphatase increased [Unknown]
  - Inappropriate schedule of product administration [Unknown]
  - Blood potassium decreased [Unknown]
  - Injury [Unknown]
  - Nasopharyngitis [Unknown]
  - Seasonal allergy [Unknown]
  - Ear discomfort [Unknown]
  - Weight decreased [Unknown]
  - Muscle spasms [Unknown]
  - Fatigue [Unknown]
  - Tinnitus [Not Recovered/Not Resolved]
  - Drug ineffective [Unknown]
  - Headache [Unknown]

NARRATIVE: CASE EVENT DATE: 20220101
